FAERS Safety Report 5528328-2 (Version None)
Quarter: 2007Q4

REPORT INFORMATION
  Report Type: 
  Country: None (occurrence: None)
  Receive Date: 20071128
  Receipt Date: 20071116
  Transmission Date: 20080405
  Serious: Yes (Other)
  Sender: FDA-Public Use
  Company Number: US-PFIZER INC-2007098279

PATIENT
  Sex: Female
  Weight: 76.7 kg

DRUGS (2)
  1. CHANTIX [Suspect]
     Indication: SMOKING CESSATION THERAPY
     Dates: start: 20070423, end: 20070911
  2. SYNTHROID [Concomitant]

REACTIONS (3)
  - ABNORMAL DREAMS [None]
  - ANGER [None]
  - SUICIDAL IDEATION [None]
